FAERS Safety Report 19710176 (Version 2)
Quarter: 2021Q3

REPORT INFORMATION
  Report Type: Spontaneous
  Country: US (occurrence: MX)
  Receive Date: 20210817
  Receipt Date: 20210824
  Transmission Date: 20211014
  Serious: Yes (Other)
  Sender: FDA-Public Use
  Company Number: US-PFIZER INC-202101033791

PATIENT
  Age: 69 Year
  Sex: Male
  Weight: 83.91 kg

DRUGS (1)
  1. CHANTIX [Suspect]
     Active Substance: VARENICLINE TARTRATE
     Indication: SMOKING CESSATION THERAPY
     Dosage: UNK, AS NEEDED

REACTIONS (3)
  - Hepatic cancer [Not Recovered/Not Resolved]
  - Abdominal discomfort [Unknown]
  - Nightmare [Unknown]

NARRATIVE: CASE EVENT DATE: 201910
